FAERS Safety Report 6781204-X (Version None)
Quarter: 2010Q2

REPORT INFORMATION
  Report Type: 
  Country: None (occurrence: None)
  Receive Date: 20100621
  Receipt Date: 20100611
  Transmission Date: 20101027
  Serious: Yes (Other)
  Sender: FDA-Public Use
  Company Number: US-PFIZER INC-2010073656

PATIENT
  Sex: Male
  Weight: 109 kg

DRUGS (6)
  1. CELEBREX [Suspect]
     Indication: ARTHRITIS
     Dosage: 200 MG, 1X/DAY
     Route: 048
  2. PROPRANOLOL [Concomitant]
     Indication: HYPERTENSION
     Dosage: 180 MG, 1X/DAY
  3. DIOVAN HCT [Concomitant]
     Indication: HYPERTENSION
     Dosage: [VALSARTAN 160MG]/[HYDROCHLOROTHIAZIDE 25MG]
     Route: 048
  4. VALPROATE SEMISODIUM [Concomitant]
     Indication: MIGRAINE
     Dosage: 500 MG, 1X/DAY
     Route: 048
  5. FINASTERIDE [Concomitant]
     Indication: PROSTATOMEGALY
     Dosage: 5 MG, 1X/DAY
     Route: 048
  6. SUMATRIPTAN [Concomitant]
     Indication: MIGRAINE
     Dosage: 50 MG, AS NEEDED
     Route: 048

REACTIONS (2)
  - RASH [None]
  - TREMOR [None]
